FAERS Safety Report 5363643-7 (Version None)
Quarter: 2007Q2

REPORT INFORMATION
  Report Type: 
  Country: None (occurrence: None)
  Receive Date: 20070618
  Receipt Date: 20070618
  Transmission Date: 20071010
  Serious: Yes (Life-Threatening)
  Sender: FDA-Public Use
  Company Number: None

PATIENT
  Age: 46 Year
  Sex: Female
  Weight: 149.687 kg

DRUGS (1)
  1. AVANDIA [Suspect]
     Indication: DIABETES MELLITUS NON-INSULIN-DEPENDENT
     Dosage: ONE PILL A DAY
     Dates: start: 20050615, end: 20070528

REACTIONS (5)
  - DYSPNOEA [None]
  - HYPOAESTHESIA [None]
  - JOINT SWELLING [None]
  - OEDEMA PERIPHERAL [None]
  - VISION BLURRED [None]
